FAERS Safety Report 9709455 (Version 2)
Quarter: 2013Q4

REPORT INFORMATION
  Report Type: Spontaneous
  Country: US (occurrence: US)
  Receive Date: 20131126
  Receipt Date: 20131220
  Transmission Date: 20140711
  Serious: No
  Sender: FDA-Public Use
  Company Number: US-009507513-1311USA010199

PATIENT
  Age: 22 Year
  Sex: Female
  Weight: 147.85 kg

DRUGS (1)
  1. NEXPLANON [Suspect]
     Indication: CONTRACEPTION
     Dosage: 1 ROD
     Route: 059
     Dates: start: 20130730, end: 20131120

REACTIONS (3)
  - Device kink [Unknown]
  - Metrorrhagia [Unknown]
  - Menstruation irregular [Not Recovered/Not Resolved]
